FAERS Safety Report 8781349 (Version 1)
Quarter: 2012Q4

REPORT INFORMATION
  Report Type: 
  Country: US (occurrence: US)
  Receive Date: 20120913
  Receipt Date: 20120913
  Transmission Date: 20130627
  Serious: No
  Sender: FDA-Public Use
  Company Number: US-VERTEX PHARMACEUTICAL INC.-AE-2012-007743

PATIENT

DRUGS (13)
  1. INCIVEK [Suspect]
     Indication: HEPATITIS C
     Route: 048
     Dates: start: 20120516
  2. RIBAVIRIN [Concomitant]
     Indication: HEPATITIS C
     Route: 048
     Dates: start: 20120516
  3. PEGASYS [Concomitant]
     Indication: HEPATITIS C
     Route: 058
     Dates: start: 20120516
  4. NORVASC [Concomitant]
  5. BENADRYL [Concomitant]
  6. LEVOTHYROXINE [Concomitant]
  7. FLONASE [Concomitant]
  8. KETOCONAZOLE [Concomitant]
  9. FLOVENT [Concomitant]
  10. TUSSIN [Concomitant]
  11. ZIACTIN [Concomitant]
  12. PROVITAL [Concomitant]
  13. LORATADINE [Concomitant]

REACTIONS (12)
  - Ocular hyperaemia [Not Recovered/Not Resolved]
  - Pyrexia [Not Recovered/Not Resolved]
  - Cough [Not Recovered/Not Resolved]
  - Skin irritation [Unknown]
  - Dyspepsia [Not Recovered/Not Resolved]
  - Stomatitis [Not Recovered/Not Resolved]
  - Lip blister [Not Recovered/Not Resolved]
  - Erythema [Unknown]
  - Haematochezia [Not Recovered/Not Resolved]
  - Proctalgia [Not Recovered/Not Resolved]
  - Diarrhoea [Not Recovered/Not Resolved]
  - Nausea [Not Recovered/Not Resolved]
